FAERS Safety Report 7913496-5 (Version None)
Quarter: 2011Q4

REPORT INFORMATION
  Report Type: 
  Country: None (occurrence: None)
  Receive Date: 20111110
  Receipt Date: 20111026
  Transmission Date: 20120403
  Serious: Yes (Other)
  Sender: FDA-Public Use
  Company Number: 2011AP002504

PATIENT
  Sex: Male

DRUGS (1)
  1. AMLODIPINE [Suspect]
     Dosage: 5 MG;QD; 10 MG
     Dates: start: 20110713, end: 20110920

REACTIONS (1)
  - SKIN ULCER [None]
